FAERS Safety Report 17186749 (Version 2)
Quarter: 2020Q1

REPORT INFORMATION
  Report Type: Spontaneous
  Country: US (occurrence: US)
  Receive Date: 20191220
  Receipt Date: 20200224
  Transmission Date: 20200409
  Serious: Yes (Other)
  Sender: FDA-Public Use
  Company Number: US-LUNDBECK-DKLU3009304

PATIENT
  Age: 69 Year
  Sex: Female

DRUGS (2)
  1. NORTHERA [Suspect]
     Active Substance: DROXIDOPA
     Indication: ORTHOSTATIC HYPOTENSION
     Route: 048
     Dates: start: 201901
  2. NORTHERA [Suspect]
     Active Substance: DROXIDOPA
     Dosage: TITRATION SCHEDULE D
     Route: 048
     Dates: start: 20190530

REACTIONS (9)
  - Heart rate decreased [Unknown]
  - Product dose omission [Unknown]
  - Hypertension [Unknown]
  - Balance disorder [Unknown]
  - Loss of consciousness [Recovered/Resolved]
  - Migraine [Unknown]
  - Gait inability [Recovered/Resolved]
  - Dysstasia [Recovered/Resolved]
  - Presyncope [Unknown]

NARRATIVE: CASE EVENT DATE: 20191214
